FAERS Safety Report 7111114-X (Version None)
Quarter: 2010Q4

REPORT INFORMATION
  Report Type: 
  Country: None (occurrence: None)
  Receive Date: 20101118
  Receipt Date: 20100406
  Transmission Date: 20110411
  Serious: No
  Sender: FDA-Public Use
  Company Number: US-TEVA-204532USA

PATIENT
  Sex: Female
  Weight: 40.86 kg

DRUGS (1)
  1. ALBUTEROL SULFATE AUTOHALER [Suspect]
     Indication: ASTHMA
     Dosage: 2 PUFFS
     Route: 055
     Dates: start: 20090101

REACTIONS (3)
  - GLOSSITIS [None]
  - THROAT IRRITATION [None]
  - VULVOVAGINAL BURNING SENSATION [None]
